FAERS Safety Report 13948776 (Version 1)
Quarter: 2017Q3

REPORT INFORMATION
  Report Type: Spontaneous
  Country: TR (occurrence: TR)
  Receive Date: 20170908
  Receipt Date: 20170908
  Transmission Date: 20171128
  Serious: Yes (Death)
  Sender: FDA-Public Use
  Company Number: TR-BAYER-2017-168576

PATIENT
  Age: 7 Year
  Sex: Male

DRUGS (1)
  1. SORAFENIB (RAF KINASE INHIBITOR) [Suspect]
     Active Substance: SORAFENIB
     Indication: METASTATIC RENAL CELL CARCINOMA

REACTIONS (4)
  - Metastatic renal cell carcinoma [Fatal]
  - Respiratory failure [Fatal]
  - Off label use [None]
  - Product use issue [None]
